FAERS Safety Report 9301433 (Version 2)
Quarter: 2013Q2

REPORT INFORMATION
  Report Type: Spontaneous
  Country: JP (occurrence: JP)
  Receive Date: 20130521
  Receipt Date: 20130524
  Transmission Date: 20140414
  Serious: Yes (Death)
  Sender: FDA-Public Use
  Company Number: JP-BAXTER-2013BAX017925

PATIENT
  Sex: Male

DRUGS (2)
  1. DIANEAL-N PD-2 2.5 PD SOLUTION [Suspect]
     Indication: RENAL FAILURE CHRONIC
     Route: 033
     Dates: start: 20090604, end: 20130511
  2. EXTRANEAL [Suspect]
     Indication: RENAL FAILURE CHRONIC
     Route: 033
     Dates: start: 20090604, end: 20130511

REACTIONS (2)
  - Myocardial infarction [Fatal]
  - Cardiac failure [Fatal]
